FAERS Safety Report 4575682-4 (Version None)
Quarter: 2005Q1

REPORT INFORMATION
  Report Type: 
  Country: None (occurrence: None)
  Receive Date: 20050127
  Receipt Date: 20041020
  Transmission Date: 20050727
  Serious: No
  Sender: FDA-Public Use
  Company Number: USA041081859

PATIENT
  Age: 8 Year
  Sex: Male

DRUGS (2)
  1. STRATTERA [Suspect]
  2. PROZAC [Suspect]

REACTIONS (3)
  - ANXIETY [None]
  - DYSPHORIA [None]
  - NAUSEA [None]
